FAERS Safety Report 5408144-2 (Version None)
Quarter: 2007Q3

REPORT INFORMATION
  Report Type: 
  Country: None (occurrence: None)
  Receive Date: 20070808
  Receipt Date: 20070730
  Transmission Date: 20080115
  Serious: Yes (Other)
  Sender: FDA-Public Use
  Company Number: US-JNJFOC-20070800176

PATIENT
  Sex: Female

DRUGS (2)
  1. LEVAQUIN [Suspect]
     Indication: CYSTITIS
     Route: 048
  2. ATENOLOL [Concomitant]
     Indication: CARDIAC DISORDER
     Route: 065

REACTIONS (1)
  - MUSCLE SPASMS [None]
